FAERS Safety Report 12919492 (Version 1)
Quarter: 2016Q4

REPORT INFORMATION
  Report Type: Spontaneous
  Country: US (occurrence: US)
  Receive Date: 20161108
  Receipt Date: 20161108
  Transmission Date: 20170207
  Serious: Yes (Death, Other)
  Sender: FDA-Public Use
  Company Number: US-AUROBINDO-AUR-APL-2016-13797

PATIENT
  Age: 3 Year
  Sex: Male

DRUGS (1)
  1. HYDROMORPHONE HYDROCHLORIDE TABLETS USP 2 MG [Suspect]
     Active Substance: HYDROMORPHONE HYDROCHLORIDE
     Indication: PRODUCT USED FOR UNKNOWN INDICATION
     Dosage: 2 MG, UNK
     Route: 065

REACTIONS (12)
  - Apnoeic attack [Unknown]
  - Aspiration [None]
  - Encephalitis [None]
  - Unresponsive to stimuli [Unknown]
  - Accidental exposure to product [Unknown]
  - Pulmonary congestion [None]
  - Pulmonary oedema [None]
  - Toxicity to various agents [Fatal]
  - Pulse absent [Unknown]
  - Wound contamination [None]
  - Accidental exposure to product by child [None]
  - Cardiac arrest [Unknown]
